FAERS Safety Report 18505620 (Version 9)
Quarter: 2021Q3

REPORT INFORMATION
  Report Type: Spontaneous
  Country: NL (occurrence: NL)
  Receive Date: 20201116
  Receipt Date: 20210920
  Transmission Date: 20211014
  Serious: Yes (Hospitalization, Other)
  Sender: FDA-Public Use
  Company Number: NVSC2020NL297565

PATIENT
  Sex: Male
  Weight: 106 kg

DRUGS (96)
  1. METHYLPREDNISOLONE. [Suspect]
     Active Substance: METHYLPREDNISOLONE
     Dosage: 250 MG, QD
     Route: 042
     Dates: start: 20201111, end: 20201111
  2. INSULIN GLARGINE [Suspect]
     Active Substance: INSULIN GLARGINE
     Dosage: 5 IU, QD
     Route: 058
     Dates: start: 20201115, end: 20210114
  3. DEXAMETHASONE. [Suspect]
     Active Substance: DEXAMETHASONE
     Dosage: 10 MG, QID
     Route: 042
     Dates: start: 20201023, end: 20201024
  4. VALACICLOVIR [Concomitant]
     Active Substance: VALACYCLOVIR HYDROCHLORIDE
     Dosage: 260 MG, BID
     Route: 065
     Dates: start: 20201110, end: 20201112
  5. INSULIN ASPART [Concomitant]
     Active Substance: INSULIN ASPART
     Dosage: 10 IU
     Route: 042
     Dates: start: 20201024, end: 20201024
  6. INSULIN ASPART [Concomitant]
     Active Substance: INSULIN ASPART
     Dosage: UNK
     Route: 042
     Dates: start: 20201109, end: 20201111
  7. FLUCONAZOLE. [Concomitant]
     Active Substance: FLUCONAZOLE
     Indication: PRODUCT USED FOR UNKNOWN INDICATION
     Dosage: 50 MG, QD
     Route: 065
     Dates: start: 20201024, end: 20201027
  8. PHOSPHATE [Concomitant]
     Active Substance: UNSPECIFIED INGREDIENT
     Indication: PRODUCT USED FOR UNKNOWN INDICATION
     Dosage: 30 MMOL, ONCE/SINGLE, (30 MMOL, ONCE)
     Route: 048
     Dates: start: 20201023, end: 20201023
  9. HALOPERIDOL. [Concomitant]
     Active Substance: HALOPERIDOL
     Dosage: 1 MG, BID
     Route: 042
     Dates: start: 20201031, end: 20201102
  10. INSULIN GLARGINE [Suspect]
     Active Substance: INSULIN GLARGINE
     Dosage: UNK
     Route: 058
     Dates: start: 20201026, end: 20201103
  11. INSULIN GLARGINE [Suspect]
     Active Substance: INSULIN GLARGINE
     Dosage: 5 IU, QD
     Route: 058
     Dates: start: 20201115, end: 20210114
  12. VALACICLOVIR [Concomitant]
     Active Substance: VALACYCLOVIR HYDROCHLORIDE
     Dosage: 500 MG, BID
     Route: 048
     Dates: start: 20201112
  13. COTRIMOXAZOL [Concomitant]
     Active Substance: SULFAMETHOXAZOLE\TRIMETHOPRIM
     Dosage: UNK
     Route: 048
     Dates: start: 20201013
  14. COTRIMOXAZOL [Concomitant]
     Active Substance: SULFAMETHOXAZOLE\TRIMETHOPRIM
     Dosage: 480 MG, QD
     Route: 048
     Dates: start: 20201115
  15. PANTOPRAZOLE [Concomitant]
     Active Substance: PANTOPRAZOLE
     Indication: PRODUCT USED FOR UNKNOWN INDICATION
     Dosage: 40 MG, QD
     Route: 048
     Dates: start: 20201010, end: 20201024
  16. INSULIN ASPART [Concomitant]
     Active Substance: INSULIN ASPART
     Dosage: UNK; 2?6 IU
     Route: 058
     Dates: start: 20201027, end: 20201109
  17. CEFTAZIDIME. [Concomitant]
     Active Substance: CEFTAZIDIME
     Dosage: 2000 MG, TID
     Route: 042
     Dates: start: 20201022, end: 20201024
  18. FLUCONAZOLE. [Concomitant]
     Active Substance: FLUCONAZOLE
     Dosage: 50 MG, QD
     Route: 065
     Dates: start: 20201111, end: 20201112
  19. FLUCONAZOLE. [Concomitant]
     Active Substance: FLUCONAZOLE
     Dosage: 50 MG, QD
     Route: 048
     Dates: start: 20201113, end: 20201119
  20. METOCLOPRAMIDE. [Concomitant]
     Active Substance: METOCLOPRAMIDE
     Indication: PRODUCT USED FOR UNKNOWN INDICATION
     Dosage: 10 MG, TID
     Route: 065
     Dates: start: 20201021
  21. HALOPERIDOL. [Concomitant]
     Active Substance: HALOPERIDOL
     Dosage: 1 MG, QD
     Route: 048
     Dates: start: 20201026, end: 20201027
  22. MESNA. [Suspect]
     Active Substance: MESNA
     Route: 042
  23. INSULIN GLARGINE [Suspect]
     Active Substance: INSULIN GLARGINE
     Dosage: 20 IU, QD
     Route: 058
     Dates: start: 20201111, end: 20201112
  24. VALACICLOVIR [Concomitant]
     Active Substance: VALACYCLOVIR HYDROCHLORIDE
     Dosage: 500 MG, BID
     Route: 048
     Dates: start: 20201017, end: 20201024
  25. VALACICLOVIR [Concomitant]
     Active Substance: VALACYCLOVIR HYDROCHLORIDE
     Dosage: 1000 MG, BID
     Route: 065
     Dates: start: 20210803, end: 20210812
  26. CLEMASTINE [Concomitant]
     Active Substance: CLEMASTINE
     Indication: PRODUCT USED FOR UNKNOWN INDICATION
     Dosage: 2 MG, ONCE
     Route: 042
     Dates: start: 20201016, end: 20201016
  27. COTRIMOXAZOL [Concomitant]
     Active Substance: SULFAMETHOXAZOLE\TRIMETHOPRIM
     Indication: PRODUCT USED FOR UNKNOWN INDICATION
     Dosage: 480 MG, QD
     Route: 048
     Dates: start: 20201013
  28. CEFTAZIDIME. [Concomitant]
     Active Substance: CEFTAZIDIME
     Indication: PRODUCT USED FOR UNKNOWN INDICATION
     Dosage: UNK
     Route: 065
     Dates: start: 20201017, end: 20201024
  29. FLUCONAZOLE. [Concomitant]
     Active Substance: FLUCONAZOLE
     Dosage: 50 MG, QD
     Route: 042
     Dates: start: 20201025, end: 20201110
  30. HALOPERIDOL. [Concomitant]
     Active Substance: HALOPERIDOL
     Dosage: 1 MG, QD
     Route: 042
     Dates: start: 20201107, end: 20201108
  31. NADROPARIN [Concomitant]
     Active Substance: NADROPARIN
     Indication: PRODUCT USED FOR UNKNOWN INDICATION
     Dosage: 2850 IU, QD
     Route: 058
     Dates: start: 20201024
  32. INSULIN GLARGINE [Suspect]
     Active Substance: INSULIN GLARGINE
     Dosage: 50 IU, QD
     Route: 058
     Dates: start: 20201106, end: 20201108
  33. INSULIN GLARGINE [Suspect]
     Active Substance: INSULIN GLARGINE
     Dosage: 15 IU, QD
     Route: 058
     Dates: start: 20201113, end: 20201113
  34. INSULIN GLARGINE [Suspect]
     Active Substance: INSULIN GLARGINE
     Dosage: 24 IU, QD
     Route: 058
     Dates: start: 20201102, end: 20201103
  35. INSULIN GLARGINE [Suspect]
     Active Substance: INSULIN GLARGINE
     Dosage: 16 IU, QD
     Route: 058
     Dates: start: 20201030, end: 20201031
  36. DEXAMETHASONE. [Suspect]
     Active Substance: DEXAMETHASONE
     Dosage: 10 MG, QID
     Route: 042
     Dates: start: 20201026, end: 20201102
  37. ALLOPURINOL. [Concomitant]
     Active Substance: ALLOPURINOL
     Indication: PRODUCT USED FOR UNKNOWN INDICATION
     Dosage: 300 MG, QD
     Route: 048
     Dates: start: 20201016, end: 20201020
  38. VALACICLOVIR [Concomitant]
     Active Substance: VALACYCLOVIR HYDROCHLORIDE
     Indication: HERPES ZOSTER
     Dosage: 500 MG, BID
     Route: 048
     Dates: start: 20201009, end: 20201024
  39. VALACICLOVIR [Concomitant]
     Active Substance: VALACYCLOVIR HYDROCHLORIDE
     Dosage: 500 MG, BID
     Route: 048
     Dates: start: 20201112
  40. COTRIMOXAZOL [Concomitant]
     Active Substance: SULFAMETHOXAZOLE\TRIMETHOPRIM
     Dosage: 480 MG, QD
     Route: 048
     Dates: start: 20201025, end: 20201026
  41. COTRIMOXAZOL [Concomitant]
     Active Substance: SULFAMETHOXAZOLE\TRIMETHOPRIM
     Dosage: 480 MG, QD
     Route: 042
     Dates: start: 20201027, end: 20201110
  42. CEFTRIAXON [Concomitant]
     Active Substance: CEFTRIAXONE
     Dosage: 2000 MG, QD
     Route: 042
     Dates: start: 20201021, end: 20201021
  43. INSULIN ASPART [Concomitant]
     Active Substance: INSULIN ASPART
     Indication: PRODUCT USED FOR UNKNOWN INDICATION
     Dosage: 4 IU, PRN
     Route: 058
     Dates: start: 20201022, end: 20201023
  44. INSULIN ASPART [Concomitant]
     Active Substance: INSULIN ASPART
     Dosage: 0?100 IE/HOUR; CONTINUOUS
     Route: 042
  45. CALCIUM GLUCONATE. [Concomitant]
     Active Substance: CALCIUM GLUCONATE
     Indication: PRODUCT USED FOR UNKNOWN INDICATION
     Dosage: 1000 MG, ONCE
     Route: 042
     Dates: start: 20201024, end: 20201024
  46. LEVETIRACETAM. [Concomitant]
     Active Substance: LEVETIRACETAM
     Indication: PRODUCT USED FOR UNKNOWN INDICATION
     Dosage: 500 MG, BID
     Route: 048
     Dates: start: 20201023
  47. HALOPERIDOL. [Concomitant]
     Active Substance: HALOPERIDOL
     Dosage: 0.5 MG, QD
     Route: 048
     Dates: start: 20201117, end: 20201117
  48. ESOMEPRAZOL [Concomitant]
     Active Substance: ESOMEPRAZOLE
     Indication: PRODUCT USED FOR UNKNOWN INDICATION
     Dosage: 40 MG, QD
     Route: 042
     Dates: start: 20201025
  49. ESOMEPRAZOL [Concomitant]
     Active Substance: ESOMEPRAZOLE
     Dosage: 1 MG, QD
     Route: 048
     Dates: start: 20201111, end: 20201112
  50. MORPHIN [Concomitant]
     Active Substance: MORPHINE
     Indication: PRODUCT USED FOR UNKNOWN INDICATION
     Dosage: 5 MG, Q12H (BID)
     Route: 058
     Dates: start: 20201022, end: 20201022
  51. R DHAC [DEXAMETHASONE] [Suspect]
     Active Substance: DEXAMETHASONE
  52. CYCLOPHOSPHAMIDE. [Suspect]
     Active Substance: CYCLOPHOSPHAMIDE
     Indication: BONE MARROW CONDITIONING REGIMEN
     Dosage: UNK
     Route: 042
  53. INSULIN GLARGINE [Suspect]
     Active Substance: INSULIN GLARGINE
     Dosage: 10 IU, QD
     Route: 058
     Dates: start: 20201114, end: 20201114
  54. DEXAMETHASONE. [Suspect]
     Active Substance: DEXAMETHASONE
     Indication: NEUROTOXICITY
     Dosage: 10 MG, QD
     Route: 042
     Dates: start: 20201021, end: 20201021
  55. DEXAMETHASONE. [Suspect]
     Active Substance: DEXAMETHASONE
     Dosage: 10 MG, QD
     Route: 048
     Dates: start: 20201022, end: 20201023
  56. DEXAMETHASONE. [Suspect]
     Active Substance: DEXAMETHASONE
     Dosage: 10 MG, TID
     Route: 042
     Dates: start: 20201102, end: 20201108
  57. DEXAMETHASONE. [Suspect]
     Active Substance: DEXAMETHASONE
     Dosage: 10 MG, TID
     Route: 042
     Dates: start: 20201103
  58. BACTRIM [Suspect]
     Active Substance: SULFAMETHOXAZOLE\TRIMETHOPRIM
     Indication: PRODUCT USED FOR UNKNOWN INDICATION
     Route: 065
  59. COTRIMOXAZOL [Concomitant]
     Active Substance: SULFAMETHOXAZOLE\TRIMETHOPRIM
     Dosage: 480 MG, QD
     Route: 048
     Dates: start: 20210709
  60. CIPROFLOXACIN. [Concomitant]
     Active Substance: CIPROFLOXACIN
     Indication: PRODUCT USED FOR UNKNOWN INDICATION
     Dosage: 500 MG, QD
     Route: 048
     Dates: start: 20201024, end: 20201025
  61. PHOSPHATE [Concomitant]
     Active Substance: UNSPECIFIED INGREDIENT
     Dosage: 30 MMOL, QD
     Route: 065
     Dates: start: 20201102, end: 20201103
  62. LEVETIRACETAM. [Concomitant]
     Active Substance: LEVETIRACETAM
     Dosage: 500 MG, BID
     Route: 042
     Dates: start: 20201025, end: 20201114
  63. HALOPERIDOL. [Concomitant]
     Active Substance: HALOPERIDOL
     Dosage: UNK
     Route: 048
     Dates: start: 20201025, end: 20201102
  64. HALOPERIDOL. [Concomitant]
     Active Substance: HALOPERIDOL
     Dosage: 1 MG, QD
     Route: 048
     Dates: start: 20201116, end: 20201116
  65. R DHAC [CARBOPLATIN] [Suspect]
     Active Substance: CARBOPLATIN
  66. FLUDARABINE [Suspect]
     Active Substance: FLUDARABINE PHOSPHATE
     Indication: BONE MARROW CONDITIONING REGIMEN
     Dosage: UNK
     Route: 042
  67. INSULIN GLARGINE [Suspect]
     Active Substance: INSULIN GLARGINE
     Dosage: 12 IU
     Route: 058
     Dates: start: 20201026, end: 20201029
  68. CEFTRIAXON [Concomitant]
     Active Substance: CEFTRIAXONE
     Indication: PRODUCT USED FOR UNKNOWN INDICATION
     Dosage: 2000 MG, BID
     Route: 042
     Dates: start: 20201013, end: 20201013
  69. CEFTRIAXON [Concomitant]
     Active Substance: CEFTRIAXONE
     Dosage: 2000 MG, BID
     Route: 042
     Dates: start: 20201109, end: 20201111
  70. INSULIN ASPART [Concomitant]
     Active Substance: INSULIN ASPART
     Dosage: 0?100 IE/HOUR; CONTINUOUS
     Route: 042
  71. PHOSPHATE [Concomitant]
     Active Substance: UNSPECIFIED INGREDIENT
     Dosage: 30 MMOL, Q12H, (30 MMOL, BID)
     Route: 048
     Dates: start: 20201022, end: 20201103
  72. LEVETIRACETAM. [Concomitant]
     Active Substance: LEVETIRACETAM
     Dosage: 500 MG, BID
     Route: 048
     Dates: start: 20201114, end: 20201118
  73. HALOPERIDOL. [Concomitant]
     Active Substance: HALOPERIDOL
     Indication: PRODUCT USED FOR UNKNOWN INDICATION
     Dosage: 0.5 MG, QD
     Route: 048
     Dates: start: 20201025, end: 20201026
  74. GENTAMICIN. [Concomitant]
     Active Substance: GENTAMICIN
     Indication: PRODUCT USED FOR UNKNOWN INDICATION
     Dosage: 440 MG, ONCE
     Route: 042
     Dates: start: 20201021, end: 20201021
  75. R DHAC [RITUXIMAB] [Suspect]
     Active Substance: RITUXIMAB
  76. METHYLPREDNISOLONE. [Suspect]
     Active Substance: METHYLPREDNISOLONE
     Dosage: 500 MG, QD
     Route: 042
     Dates: start: 20201110, end: 20201110
  77. MESNA. [Suspect]
     Active Substance: MESNA
     Indication: PROPHYLAXIS
     Dosage: UNK
     Route: 042
  78. INSULIN GLARGINE [Suspect]
     Active Substance: INSULIN GLARGINE
     Indication: PRODUCT USED FOR UNKNOWN INDICATION
     Dosage: 50 IU, QD
     Route: 065
     Dates: start: 20201026, end: 20201103
  79. INSULIN GLARGINE [Suspect]
     Active Substance: INSULIN GLARGINE
     Dosage: 20 IU, QD
     Route: 058
     Dates: start: 20201101, end: 20201101
  80. DEXAMETHASONE. [Suspect]
     Active Substance: DEXAMETHASONE
     Dosage: 10 MG, QD
     Route: 048
     Dates: start: 20201022, end: 20201022
  81. ONDANSETRON [Concomitant]
     Active Substance: ONDANSETRON
     Indication: PRODUCT USED FOR UNKNOWN INDICATION
     Dosage: 8 MG, BID
     Route: 048
     Dates: start: 20201009, end: 20201019
  82. PANTOPRAZOLE [Concomitant]
     Active Substance: PANTOPRAZOLE
     Dosage: 40 MG, QD
     Route: 048
     Dates: start: 20201112
  83. INSULIN ASPART [Concomitant]
     Active Substance: INSULIN ASPART
     Dosage: UNK, PRN
     Route: 058
     Dates: start: 20201111, end: 20210114
  84. HALOPERIDOL. [Concomitant]
     Active Substance: HALOPERIDOL
     Dosage: 1 MG, BID
     Route: 042
     Dates: start: 20201112, end: 20201115
  85. METFORMIN [Concomitant]
     Active Substance: METFORMIN HYDROCHLORIDE
     Indication: DIABETES MELLITUS
     Dosage: 1000 MG, BID
     Route: 048
     Dates: start: 20201111
  86. METHYLPREDNISOLONE. [Suspect]
     Active Substance: METHYLPREDNISOLONE
     Indication: PRODUCT USED FOR UNKNOWN INDICATION
     Dosage: 1000 MG, QD
     Route: 042
     Dates: start: 20201024, end: 20201026
  87. METHYLPREDNISOLONE. [Suspect]
     Active Substance: METHYLPREDNISOLONE
     Dosage: 1000 MG, QD
     Route: 042
     Dates: start: 20201109, end: 20201109
  88. R DHAC [CYTARABINE] [Suspect]
     Active Substance: CYTARABINE
     Indication: MANTLE CELL LYMPHOMA
     Dosage: UNK
     Route: 065
  89. INSULIN GLARGINE [Suspect]
     Active Substance: INSULIN GLARGINE
     Dosage: 30 IU, QD
     Route: 058
     Dates: start: 20201103, end: 20201103
  90. COTRIMOXAZOL [Concomitant]
     Active Substance: SULFAMETHOXAZOLE\TRIMETHOPRIM
     Dosage: 480 MG, QD
     Route: 065
     Dates: start: 20201111, end: 20201114
  91. INSULIN ASPART [Concomitant]
     Active Substance: INSULIN ASPART
     Dosage: UNK
     Route: 058
     Dates: start: 20201022, end: 20201027
  92. CIPROFLOXACIN. [Concomitant]
     Active Substance: CIPROFLOXACIN
     Dosage: 400 MG, BID
     Route: 042
     Dates: start: 20201025, end: 20201028
  93. CEFTAZIDIME. [Concomitant]
     Active Substance: CEFTAZIDIME
     Dosage: 2000 MG, TID
     Route: 042
     Dates: start: 20201017, end: 20201024
  94. NORADRENALIN [Concomitant]
     Active Substance: NOREPINEPHRINE\NOREPINEPHRINE BITARTRATE
     Indication: PRODUCT USED FOR UNKNOWN INDICATION
     Dosage: 2850 IU, QD
     Route: 058
     Dates: start: 20201024, end: 20201024
  95. HALOPERIDOL. [Concomitant]
     Active Substance: HALOPERIDOL
     Dosage: 2.5 MG, BID
     Route: 042
     Dates: start: 20201109, end: 20201109
  96. CARBASALATE CALCIUM [Concomitant]
     Active Substance: CARBASPIRIN CALCIUM
     Indication: PRODUCT USED FOR UNKNOWN INDICATION
     Dosage: 100 MG, QD
     Route: 048
     Dates: start: 20210706

REACTIONS (25)
  - Diarrhoea [Not Recovered/Not Resolved]
  - Acute kidney injury [Recovered/Resolved]
  - Haemolytic anaemia [Not Recovered/Not Resolved]
  - Myalgia [Recovered/Resolved]
  - Scrotal pain [Recovered/Resolved]
  - Sinus bradycardia [Recovered/Resolved]
  - Hypotension [Recovered/Resolved]
  - Delirium [Recovered/Resolved]
  - Fatigue [Recovered/Resolved]
  - Haematuria [Not Recovered/Not Resolved]
  - Herpes zoster reactivation [Recovered/Resolved]
  - Hyperkalaemia [Recovered/Resolved]
  - Malaise [Recovered/Resolved]
  - Cytokine release syndrome [Recovered/Resolved]
  - Hyponatraemia [Recovered/Resolved]
  - Urinary retention [Recovered/Resolved]
  - Platelet count decreased [Not Recovered/Not Resolved]
  - Chills [Recovered/Resolved]
  - Pyrexia [Recovered/Resolved]
  - Lymphocyte count decreased [Not Recovered/Not Resolved]
  - Febrile neutropenia [Recovered/Resolved]
  - Neutrophil count decreased [Not Recovered/Not Resolved]
  - Hypothalamo-pituitary disorder [Recovered/Resolved]
  - Cognitive disorder [Recovered/Resolved]
  - Folliculitis [Recovered/Resolved]

NARRATIVE: CASE EVENT DATE: 20201009
